FAERS Safety Report 5205849-3 (Version None)
Quarter: 2007Q1

REPORT INFORMATION
  Report Type: 
  Country: None (occurrence: None)
  Receive Date: 20070105
  Receipt Date: 20070105
  Transmission Date: 20070707
  Serious: Yes (Life-Threatening, Hospitalization)
  Sender: FDA-Public Use
  Company Number: None

PATIENT
  Age: 72 Year
  Sex: Male
  Weight: 78 kg

DRUGS (12)
  1. DIGOXIN [Suspect]
     Indication: CARDIAC FAILURE CONGESTIVE
     Dosage: 0.125 MG ONCE DAILY PO
     Route: 048
     Dates: start: 19970605, end: 20060713
  2. LITHIUM CARBONATE [Suspect]
     Indication: SCHIZOPHRENIA
     Dosage: 300 MG TWICE DAILY PO
     Route: 048
     Dates: start: 19920410
  3. NORTRIPTYLINE HCL [Concomitant]
  4. LOSARTAN POTASSIUM [Concomitant]
  5. RISPERIDONE [Concomitant]
  6. ALBUTEROL [Concomitant]
  7. IPRATROPIUM MDI [Concomitant]
  8. SIMVASTATIN [Concomitant]
  9. FLUPHENAZINE DECANOATE [Concomitant]
  10. FORMOTEROL FUMARATE [Concomitant]
  11. NITROGLYCERIN [Concomitant]
  12. TEMAZEPAM [Concomitant]

REACTIONS (13)
  - ATRIOVENTRICULAR BLOCK COMPLETE [None]
  - BLOOD CREATININE INCREASED [None]
  - BRADYCARDIA [None]
  - BRADYKINESIA [None]
  - DIZZINESS [None]
  - DYSPNOEA [None]
  - GENERALISED OEDEMA [None]
  - HYPOTHYROIDISM [None]
  - LETHARGY [None]
  - NO THERAPEUTIC RESPONSE [None]
  - PALPITATIONS [None]
  - SYNCOPE [None]
  - THERAPEUTIC AGENT TOXICITY [None]
